APPROVED DRUG PRODUCT: HYDROCODONE BITARTRATE AND ACETAMINOPHEN
Active Ingredient: ACETAMINOPHEN; HYDROCODONE BITARTRATE
Strength: 750MG;7.5MG
Dosage Form/Route: TABLET;ORAL
Application: A040469 | Product #001
Applicant: ABLE LABORATORIES INC
Approved: Oct 25, 2002 | RLD: No | RS: No | Type: DISCN